FAERS Safety Report 7346721-2 (Version None)
Quarter: 2011Q1

REPORT INFORMATION
  Report Type: 
  Country: None (occurrence: None)
  Receive Date: 20110311
  Receipt Date: 20110301
  Transmission Date: 20110831
  Serious: Yes (Hospitalization)
  Sender: FDA-Public Use
  Company Number: AU-PURDUE-USA-2011-0064100

PATIENT
  Sex: Female

DRUGS (3)
  1. NORSPAN (NDA 21-306) [Suspect]
     Indication: PRODUCT USED FOR UNKNOWN INDICATION
     Dosage: 5 MCG, UNK
     Route: 062
     Dates: start: 20101229, end: 20110112
  2. EPILIM [Concomitant]
     Indication: PRODUCT USED FOR UNKNOWN INDICATION
  3. LITHIUM CARBONATE [Concomitant]
     Indication: PRODUCT USED FOR UNKNOWN INDICATION

REACTIONS (15)
  - GASTROINTESTINAL DISORDER [None]
  - FACE OEDEMA [None]
  - FALL [None]
  - JOINT INSTABILITY [None]
  - LETHARGY [None]
  - URINARY RETENTION [None]
  - DELIRIUM [None]
  - INCOHERENT [None]
  - ABASIA [None]
  - URINARY INCONTINENCE [None]
  - MALAISE [None]
  - DYSKINESIA [None]
  - SWOLLEN TONGUE [None]
  - CONFUSIONAL STATE [None]
  - TREMOR [None]
